FAERS Safety Report 7805056-1 (Version None)
Quarter: 2011Q4

REPORT INFORMATION
  Report Type: 
  Country: None (occurrence: None)
  Receive Date: 20111010
  Receipt Date: 20110926
  Transmission Date: 20120403
  Serious: Yes (Hospitalization)
  Sender: FDA-Public Use
  Company Number: GB-GLAXOSMITHKLINE-B0741962A

PATIENT
  Sex: Male

DRUGS (2)
  1. CIPROFLOXACIN [Concomitant]
  2. PAZOPANIB [Suspect]
     Indication: METASTATIC RENAL CELL CARCINOMA
     Dosage: 600MG PER DAY
     Route: 065
     Dates: start: 20101224

REACTIONS (1)
  - URINARY TRACT INFECTION [None]
